FAERS Safety Report 13083291 (Version 1)
Quarter: 2017Q1

REPORT INFORMATION
  Report Type: Spontaneous
  Country: US (occurrence: US)
  Receive Date: 20170104
  Receipt Date: 20170104
  Transmission Date: 20170428
  Serious: No
  Sender: FDA-Public Use
  Company Number: US-ASTRAZENECA-2016SF36309

PATIENT
  Sex: Male

DRUGS (3)
  1. BRILINTA [Suspect]
     Active Substance: TICAGRELOR
     Indication: STENT PLACEMENT
     Route: 048
     Dates: start: 201512
  2. METOPROLOL. [Suspect]
     Active Substance: METOPROLOL
     Route: 048
  3. ELIQUIS [Concomitant]
     Active Substance: APIXABAN
     Indication: STENT PLACEMENT
     Route: 048
     Dates: start: 201512

REACTIONS (5)
  - Drug dose omission [Unknown]
  - Hunger [Unknown]
  - Off label use [Unknown]
  - Hyperhidrosis [Unknown]
  - Asthenia [Unknown]
